FAERS Safety Report 6931253-3 (Version None)
Quarter: 2010Q3

REPORT INFORMATION
  Report Type: 
  Country: None (occurrence: None)
  Receive Date: 20100816
  Receipt Date: 20100804
  Transmission Date: 20110219
  Serious: Yes (Other)
  Sender: FDA-Public Use
  Company Number: 2010SP043676

PATIENT
  Age: 66 Year
  Sex: Male
  Weight: 105 kg

DRUGS (2)
  1. EPTIFIBATIDE [Suspect]
     Indication: PERCUTANEOUS CORONARY INTERVENTION
     Dates: start: 20100709, end: 20100709
  2. CLOPIDOGREL [Suspect]
     Indication: PERCUTANEOUS CORONARY INTERVENTION
     Dates: start: 20100709, end: 20100709

REACTIONS (2)
  - CEREBRAL HAEMORRHAGE [None]
  - DRUG INTERACTION [None]
